FAERS Safety Report 23876733 (Version 1)
Quarter: 2024Q2

REPORT INFORMATION
  Report Type: Spontaneous
  Country: US (occurrence: US)
  Receive Date: 20240521
  Receipt Date: 20240521
  Transmission Date: 20240716
  Serious: Yes (Other)
  Sender: FDA-Public Use
  Company Number: US-GRAVITIPHARMA-GRA-2405-US-LIT-0142

PATIENT
  Age: 14 Month
  Sex: Male

DRUGS (3)
  1. GABAPENTIN [Suspect]
     Active Substance: GABAPENTIN
     Indication: Feeding intolerance
  2. CLONIDINE [Suspect]
     Active Substance: CLONIDINE
     Indication: Feeding intolerance
  3. NORTRIPTYLINE [Concomitant]
     Active Substance: NORTRIPTYLINE
     Indication: Feeding intolerance

REACTIONS (1)
  - Drug ineffective [Unknown]
